FAERS Safety Report 4565823-7 (Version None)
Quarter: 2005Q1

REPORT INFORMATION
  Report Type: 
  Country: None (occurrence: None)
  Receive Date: 20050128
  Receipt Date: 20050117
  Transmission Date: 20050727
  Serious: Yes (Hospitalization)
  Sender: FDA-Public Use
  Company Number: 2005JP000114

PATIENT
  Age: 11 Year
  Sex: Male

DRUGS (5)
  1. PROGRAF [Suspect]
     Indication: BONE MARROW TRANSPLANT
  2. BUSULFAN [Concomitant]
  3. CYCLOPHOSPHAMIDE [Concomitant]
  4. ANTITHYMOCYTE IMMUNOGLOBULIN (RABBIT) [Concomitant]
  5. MYCOPHENOLATE MOFETIL (MYCOPHENOLATE MOFETIL) [Concomitant]

REACTIONS (9)
  - ABDOMINAL DISTENSION [None]
  - BLOOD PRESSURE DIASTOLIC DECREASED [None]
  - CHEST PAIN [None]
  - DYSPNOEA [None]
  - PERICARDITIS [None]
  - PYREXIA [None]
  - RASH ERYTHEMATOUS [None]
  - SINUS TACHYCARDIA [None]
  - WEIGHT INCREASED [None]
